FAERS Safety Report 6814645-2 (Version None)
Quarter: 2010Q3

REPORT INFORMATION
  Report Type: 
  Country: None (occurrence: None)
  Receive Date: 20100702
  Receipt Date: 20100624
  Transmission Date: 20110219
  Serious: Yes (Other)
  Sender: FDA-Public Use
  Company Number: AU-PFIZER INC-2010078612

PATIENT
  Age: 55 Year
  Sex: Male

DRUGS (1)
  1. ZELDOX [Suspect]
     Dosage: 80 MG, 2X/DAY
     Route: 048

REACTIONS (2)
  - DRUG INEFFECTIVE [None]
  - PARANOIA [None]
